FAERS Safety Report 10019235 (Version 2)
Quarter: 2014Q1

REPORT INFORMATION
  Report Type: Spontaneous
  Country: FR (occurrence: FR)
  Receive Date: 20140318
  Receipt Date: 20140318
  Transmission Date: 20141002
  Serious: Yes (Hospitalization, Other)
  Sender: FDA-Public Use
  Company Number: FR-VERTEX PHARMACEUTICALS INC-000000000000000420

PATIENT
  Age: 76 Year
  Sex: Male
  Weight: 75 kg

DRUGS (7)
  1. INCIVO [Suspect]
     Indication: HEPATITIS C
     Dosage: 750 MG, TID
     Dates: start: 20111117, end: 20120213
  2. COPEGUS [Concomitant]
     Indication: HEPATITIS C
     Dosage: 600 MG, QD
     Dates: start: 20111215, end: 20111216
  3. COPEGUS [Concomitant]
     Dosage: 400 MG, QD
     Dates: start: 20111216, end: 20121004
  4. COPEGUS [Concomitant]
     Dosage: 800 MG, QD
     Dates: start: 20111011, end: 20111215
  5. PEGASYS [Concomitant]
     Indication: HEPATITIS C
     Dosage: 135 ?G, QW
     Dates: start: 20111104, end: 20121004
  6. PEGASYS [Concomitant]
     Dosage: 180 ?G, QW
     Dates: start: 20111011, end: 20111104
  7. NEORECORMON [Concomitant]
     Indication: ANAEMIA
     Dosage: TWO TIMES PER WEEK
     Dates: start: 20111115

REACTIONS (4)
  - Cholecystitis acute [Recovered/Resolved]
  - Hyperkalaemia [Recovered/Resolved]
  - Renal failure [Recovered/Resolved]
  - Anaemia [Recovered/Resolved]
